FAERS Safety Report 9319826 (Version 3)
Quarter: 2013Q2

REPORT INFORMATION
  Report Type: Spontaneous
  Country: US (occurrence: US)
  Receive Date: 20130530
  Receipt Date: 20130613
  Transmission Date: 20140414
  Serious: Yes (Hospitalization)
  Sender: FDA-Public Use
  Company Number: US-MYLANLABS-2013S1011200

PATIENT
  Age: 67 Year
  Sex: Female
  Weight: 76.66 kg

DRUGS (16)
  1. PERFOROMIST (FORMOTEROL FUMARATE) INHALATION SOLUTION [Suspect]
     Indication: CHRONIC OBSTRUCTIVE PULMONARY DISEASE
     Route: 055
     Dates: start: 20121227, end: 201301
  2. NOVOLOG [Concomitant]
     Indication: DIABETES MELLITUS
     Dosage: DOSE VARIES
     Route: 058
  3. LEVEMIR [Concomitant]
     Indication: DIABETES MELLITUS
     Dosage: DOSE VARIES
     Route: 058
  4. OMEPRAZOLE [Concomitant]
     Route: 048
  5. ASPIRIN [Concomitant]
     Dosage: HEART HEALTH
     Route: 048
  6. AMLODIPINE [Concomitant]
     Indication: HYPERTENSION
     Route: 048
  7. FUROSEMIDE [Concomitant]
     Dosage: 20-40MG QD-BID
     Route: 048
  8. LOSARTAN POTASSIUM AND HYDROCHLOROTHIAZIDE TABLETS [Concomitant]
     Indication: HYPERTENSION
     Dosage: 1/2 OF 50MG/12.5MG
     Route: 048
  9. SIMVASTATIN [Concomitant]
     Indication: BLOOD CHOLESTEROL INCREASED
     Route: 048
  10. GLYBURIDE [Concomitant]
     Indication: DIABETES MELLITUS
     Route: 048
  11. METOPROLOL [Concomitant]
     Indication: HYPERTENSION
     Route: 048
  12. PREDNISONE [Concomitant]
     Indication: CHRONIC OBSTRUCTIVE PULMONARY DISEASE
     Dosage: DOSE VARIES
     Route: 048
  13. SPIRIVA [Concomitant]
     Indication: CHRONIC OBSTRUCTIVE PULMONARY DISEASE
     Dosage: 1 CAPSULE
     Route: 055
  14. ASMANEX [Concomitant]
  15. ZOCOR [Concomitant]
  16. IRON [Concomitant]

REACTIONS (10)
  - Acute respiratory failure [Recovered/Resolved]
  - Hypoxia [Not Recovered/Not Resolved]
  - Dyspnoea [Not Recovered/Not Resolved]
  - Lower respiratory tract infection [Recovering/Resolving]
  - Fatigue [Recovering/Resolving]
  - Asthenia [Recovering/Resolving]
  - Malaise [Recovering/Resolving]
  - Disease progression [Not Recovered/Not Resolved]
  - Nausea [Not Recovered/Not Resolved]
  - Vomiting [Recovered/Resolved]
